FAERS Safety Report 8227638-8 (Version None)
Quarter: 2012Q1

REPORT INFORMATION
  Report Type: 
  Country: None (occurrence: None)
  Receive Date: 20120322
  Receipt Date: 20120313
  Transmission Date: 20120608
  Serious: Yes (Other)
  Sender: FDA-Public Use
  Company Number: DE-SANOFI-AVENTIS-2012SA016999

PATIENT
  Age: 54 Year
  Sex: Female
  Weight: 70 kg

DRUGS (5)
  1. LEFLUNOMIDE [Suspect]
     Indication: RHEUMATOID ARTHRITIS
     Route: 042
     Dates: start: 20091001, end: 20111031
  2. HYDROCHLOROTHIAZIDE [Concomitant]
     Dates: start: 20080501
  3. TOCILIZUMAB [Suspect]
     Indication: RHEUMATOID ARTHRITIS
     Route: 042
     Dates: start: 20110517, end: 20111121
  4. TOCILIZUMAB [Suspect]
     Route: 042
     Dates: start: 20110517, end: 20111121
  5. OLMESARTAN MEDOXOMIL [Concomitant]
     Dates: start: 20080501

REACTIONS (1)
  - HEPATIC ENZYME INCREASED [None]
